FAERS Safety Report 10363086 (Version 1)
Quarter: 2014Q1

REPORT INFORMATION
  Report Type: Spontaneous
  Country: US (occurrence: None)
  Receive Date: 20140306
  Receipt Date: 20140306
  Transmission Date: 20141002
  Serious: Yes (Other)
  Sender: FDA-Public Use
  Company Number: 163-21880-13074204

PATIENT
  Age: 69 Year
  Sex: Female

DRUGS (9)
  1. REVLIMID [Suspect]
     Indication: PLASMA CELL MYELOMA
     Route: 048
     Dates: start: 20120510
  2. EASYLAX(PHENOLPHTHALEIN)(CAPSULES) [Concomitant]
  3. ZINC(ZINC)(CAPSULES)?? [Concomitant]
  4. MULTIVITAMINS(MULTIVITAMINS)(TABLETS) [Concomitant]
  5. A THRU Z SELECT(OTHER VITAMIN PRODUCTS, COMBINATIONS)(TABLETS) [Concomitant]
  6. VITAMIN E(TOCOPHEROL)(CAPSULES)? [Concomitant]
  7. GLUCOSAMINE/CHONDROITIN(GLUCOSAMINEW/CHONDROITIN SULFATE)(CAPSULES)? [Concomitant]
  8. VITAMIN C(ASCORBIC ACID)(TABLETS) [Concomitant]
  9. ASPIRIN(ACETYLSALICYLIC ACID)(TABLETS) [Concomitant]

REACTIONS (1)
  - Pancytopenia [None]
